FAERS Safety Report 24758752 (Version 1)
Quarter: 2024Q4

REPORT INFORMATION
  Report Type: Report from Study
  Country: CA (occurrence: CA)
  Receive Date: 20241220
  Receipt Date: 20241220
  Transmission Date: 20250114
  Serious: Yes (Death, Other)
  Sender: IPSEN BIOPHARMACEUTICALS, INC.
  Company Number: CA-IPSEN Group, Research and Development-2024-26160

PATIENT
  Age: 77 Year
  Sex: Male

DRUGS (29)
  1. LANREOTIDE ACETATE [Suspect]
     Active Substance: LANREOTIDE ACETATE
     Indication: Gastroenteropancreatic neuroendocrine tumour disease
     Dosage: DEEP
     Route: 058
     Dates: start: 20240117
  2. IRBESARTAN [Concomitant]
     Active Substance: IRBESARTAN
     Dosage: 150MG + 75MG DAILY
  3. FLOMAX [Concomitant]
     Active Substance: TAMSULOSIN HYDROCHLORIDE
     Indication: Prostatic disorder
     Dosage: 2X 0.4 MICROGRAMS
  4. NOVORAPID [Concomitant]
     Active Substance: INSULIN ASPART
  5. METFORMIN [Concomitant]
     Active Substance: METFORMIN HYDROCHLORIDE
  6. NOVORAPID [Concomitant]
     Active Substance: INSULIN ASPART
     Indication: Dyspepsia
  7. AVALIDE [Concomitant]
     Active Substance: HYDROCHLOROTHIAZIDE\IRBESARTAN
     Indication: Blood pressure abnormal
     Dosage: 150 + 75 MG X 1
  8. PANTOPRAZOLE SODIUM [Concomitant]
     Active Substance: PANTOPRAZOLE SODIUM
     Indication: Abdominal discomfort
     Dosage: X1
  9. COLLAGEN [Concomitant]
     Active Substance: COLLAGEN
     Indication: Arthropathy
     Dosage: X3
  10. HERBALS\TURMERIC [Concomitant]
     Active Substance: HERBALS\TURMERIC
     Indication: Antiinflammatory therapy
     Dosage: X1
  11. ACAI BERRY [Concomitant]
     Indication: Antiinflammatory therapy
     Dosage: X1
  12. ACAI BERRY [Concomitant]
     Indication: Nutritional supplementation
  13. VITAMINS [Concomitant]
     Active Substance: VITAMINS
     Dosage: XL
  14. FOLIC ACID [Concomitant]
     Active Substance: FOLIC ACID
     Dosage: X1
  15. VITAMIN D3 [Concomitant]
     Active Substance: CHOLECALCIFEROL
     Dosage: X3
  16. OMEGA 3 [Concomitant]
     Active Substance: CAPSAICIN
     Dosage: X3
  17. GLUCOSAMINE + CHONDROITIN + MSM [Concomitant]
     Indication: Arthropathy
     Dosage: MSM 5OO/ 40A1 400 MG X3
  18. VITAMIN C [Concomitant]
     Active Substance: ASCORBIC ACID
     Dosage: X3
  19. MINERALS\VITAMINS [Concomitant]
     Active Substance: MINERALS\VITAMINS
     Indication: Ocular discomfort
  20. VITAMIN B12 [Concomitant]
     Active Substance: CYANOCOBALAMIN
     Dosage: EVERY 2 DAYS
  21. MAGNESIUM L-THREONATE [Concomitant]
     Indication: Sleep disorder
     Dosage: X3
  22. DIETARY SUPPLEMENT [Concomitant]
     Active Substance: DIETARY SUPPLEMENT
  23. CHAMOMILE [Concomitant]
     Active Substance: CHAMOMILE
     Indication: Sleep disorder
     Dosage: X2
  24. DIETARY SUPPLEMENT\RESVERATROL [Concomitant]
     Active Substance: DIETARY SUPPLEMENT\RESVERATROL
     Indication: Antioxidant therapy
     Dosage: X2
  25. FISETIN [Concomitant]
     Active Substance: FISETIN
     Indication: Antioxidant therapy
     Dosage: X1
  26. FERAMAX IRON [Concomitant]
     Dosage: L50 MG X2
  27. B100 [Concomitant]
     Active Substance: CITRIC ACID MONOHYDRATE\SODIUM CHLORITE
  28. COMPLEX [Concomitant]
     Dosage: X1
  29. SELENIUM [Concomitant]
     Active Substance: SELENIUM
     Dosage: 1^00 UG XL

REACTIONS (1)
  - Death [Fatal]

NARRATIVE: CASE EVENT DATE: 20241215
